FAERS Safety Report 6142384-2 (Version None)
Quarter: 2009Q2

REPORT INFORMATION
  Report Type: 
  Country: None (occurrence: None)
  Receive Date: 20090403
  Receipt Date: 20070405
  Transmission Date: 20091009
  Serious: Yes (Death, Hospitalization, Other)
  Sender: FDA-Public Use
  Company Number: US-ASTRAZENECA-2006UW09853

PATIENT
  Age: 5914 Day
  Sex: Female
  Weight: 101.6 kg

DRUGS (17)
  1. SEROQUEL [Suspect]
     Indication: AGGRESSION
     Dosage: 50MG TO 100MG
     Route: 048
     Dates: start: 20040401, end: 20040901
  2. SEROQUEL [Suspect]
     Dosage: 25MG - 200MG
     Route: 048
     Dates: start: 20040414
  3. CLONIDINE [Concomitant]
     Dates: start: 19940101, end: 20040101
  4. ZOLOFT [Concomitant]
     Dates: start: 19940101, end: 20040101
  5. DIAZEPAM [Concomitant]
  6. KLONOPIN [Concomitant]
  7. ZYPREXA [Concomitant]
  8. TERGRETOL [Concomitant]
  9. ZOFRAN [Concomitant]
  10. INSULIN [Concomitant]
  11. TYLENOL [Concomitant]
  12. LIDOCAINE [Concomitant]
  13. EPINEPHRINE [Concomitant]
  14. DOPAMINE HCL [Concomitant]
  15. NOREPINEPHRINE [Concomitant]
  16. ZANTAC [Concomitant]
  17. CARBATROL [Concomitant]

REACTIONS (11)
  - AFFECTIVE DISORDER [None]
  - AUTISM SPECTRUM DISORDER [None]
  - CONSTIPATION [None]
  - CONVULSION [None]
  - DIABETES MELLITUS [None]
  - DIABETIC KETOACIDOSIS [None]
  - OBSESSIVE-COMPULSIVE DISORDER [None]
  - PANCREATITIS [None]
  - SHOCK [None]
  - STEREOTYPY [None]
  - TARDIVE DYSKINESIA [None]
